FAERS Safety Report 22170129 (Version 3)
Quarter: 2024Q1

REPORT INFORMATION
  Report Type: Report from Study
  Country: TW (occurrence: TW)
  Receive Date: 20230404
  Receipt Date: 20240222
  Transmission Date: 20240410
  Serious: Yes (Hospitalization)
  Sender: FDA-Public Use
  Company Number: TW-ABBVIE-4713433

PATIENT
  Age: 69 Year
  Sex: Male

DRUGS (2)
  1. SKYRIZI [Suspect]
     Active Substance: RISANKIZUMAB-RZAA
     Indication: Psoriasis
     Route: 058
     Dates: start: 20221130, end: 20221214
  2. SKYRIZI [Suspect]
     Active Substance: RISANKIZUMAB-RZAA
     Route: 058
     Dates: start: 20221228

REACTIONS (8)
  - Spinal compression fracture [Recovering/Resolving]
  - Benign prostatic hyperplasia [Recovering/Resolving]
  - Pneumonia [Recovered/Resolved]
  - Thrombocytopenia [Recovering/Resolving]
  - Constipation [Recovered/Resolved]
  - Cognitive disorder [Unknown]
  - Peptic ulcer [Unknown]
  - Abscess [Unknown]

NARRATIVE: CASE EVENT DATE: 20230102
